FAERS Safety Report 4907754-6 (Version None)
Quarter: 2006Q1

REPORT INFORMATION
  Report Type: 
  Country: None (occurrence: None)
  Receive Date: 20060208
  Receipt Date: 20060208
  Transmission Date: 20060701
  Serious: Yes (Hospitalization)
  Sender: FDA-Public Use
  Company Number: None

PATIENT
  Age: 48 Year
  Sex: Male

DRUGS (2)
  1. OXANDRIN [Suspect]
     Indication: LUNG NEOPLASM MALIGNANT
     Dosage: 10MG ONE PO BID
     Route: 048
     Dates: start: 20051012, end: 20051022
  2. OXANDRIN [Suspect]
     Indication: WEIGHT DECREASED
     Dosage: 10MG ONE PO BID
     Route: 048
     Dates: start: 20051012, end: 20051022

REACTIONS (5)
  - CONSTIPATION [None]
  - CONVULSION [None]
  - DEHYDRATION [None]
  - NAUSEA [None]
  - VOMITING [None]
